FAERS Safety Report 13056263 (Version 2)
Quarter: 2017Q1

REPORT INFORMATION
  Report Type: Spontaneous
  Country: US (occurrence: US)
  Receive Date: 20161222
  Receipt Date: 20170112
  Transmission Date: 20170428
  Serious: Yes (Hospitalization)
  Sender: FDA-Public Use
  Company Number: US-RELYPSA-RLY2016004414

PATIENT
  Age: 71 Year
  Sex: Male

DRUGS (10)
  1. SIMVASTATIN. [Concomitant]
     Active Substance: SIMVASTATIN
  2. LACTULOSE. [Concomitant]
     Active Substance: LACTULOSE
  3. GLIPIZIDE. [Concomitant]
     Active Substance: GLIPIZIDE
  4. LEVEMIR [Concomitant]
     Active Substance: INSULIN DETEMIR
  5. SERTRALINE HCL [Concomitant]
     Active Substance: SERTRALINE HYDROCHLORIDE
  6. DILTIAZEM. [Concomitant]
     Active Substance: DILTIAZEM
  7. VELTASSA [Suspect]
     Active Substance: PATIROMER
     Indication: HYPERKALAEMIA
     Dosage: 8.4 G, QD
     Route: 048
     Dates: start: 20160519
  8. NOVOLOG [Concomitant]
     Active Substance: INSULIN ASPART
  9. JANUVIA [Concomitant]
     Active Substance: SITAGLIPTIN PHOSPHATE
  10. FUROSEMIDE. [Concomitant]
     Active Substance: FUROSEMIDE

REACTIONS (1)
  - Dyspnoea [Unknown]

NARRATIVE: CASE EVENT DATE: 201612
